FAERS Safety Report 6688103-2 (Version None)
Quarter: 2010Q2

REPORT INFORMATION
  Report Type: 
  Country: None (occurrence: None)
  Receive Date: 20100420
  Receipt Date: 20100409
  Transmission Date: 20101027
  Serious: Yes (Other)
  Sender: FDA-Public Use
  Company Number: HQWYE015602FEB05

PATIENT
  Sex: Female

DRUGS (3)
  1. PREMPRO [Suspect]
     Dosage: UNKNOWN
     Route: 048
     Dates: start: 19971201
  2. PREMARIN [Suspect]
     Dosage: UNKNOWN
     Dates: start: 19880101, end: 19971201
  3. PROVERA [Suspect]
     Dosage: UNKNOWN
     Route: 048
     Dates: start: 19881001, end: 19971201

REACTIONS (1)
  - CONTRALATERAL BREAST CANCER [None]
